FAERS Safety Report 6368668-0 (Version None)
Quarter: 2009Q3

REPORT INFORMATION
  Report Type: 
  Country: None (occurrence: None)
  Receive Date: 20090917
  Receipt Date: 20090917
  Transmission Date: 20100115
  Serious: No
  Sender: FDA-Public Use
  Company Number: None

PATIENT
  Age: 53 Year
  Sex: Female
  Weight: 58.9676 kg

DRUGS (1)
  1. ZONISAMIDE [Suspect]
     Indication: MIGRAINE PROPHYLAXIS
     Dosage: 25 MG 1 X PER DAY PO
     Route: 048
     Dates: start: 20081020, end: 20081027

REACTIONS (1)
  - BACK PAIN [None]
